FAERS Safety Report 8243356-4 (Version None)
Quarter: 2012Q1

REPORT INFORMATION
  Report Type: 
  Country: None (occurrence: None)
  Receive Date: 20120329
  Receipt Date: 20120326
  Transmission Date: 20120608
  Serious: Yes (Other)
  Sender: FDA-Public Use
  Company Number: GR-ROCHE-1052825

PATIENT
  Age: 55 Year
  Sex: Female
  Weight: 58 kg

DRUGS (2)
  1. THYROHORMONE [Concomitant]
  2. BONIVA [Suspect]
     Indication: OSTEOPOROSIS
     Dates: start: 20120320

REACTIONS (6)
  - FATIGUE [None]
  - ILL-DEFINED DISORDER [None]
  - SOMNOLENCE [None]
  - VOMITING [None]
  - HEADACHE [None]
  - DIZZINESS [None]
